FAERS Safety Report 6844680-X (Version None)
Quarter: 2010Q2

REPORT INFORMATION
  Report Type: 
  Country: None (occurrence: None)
  Receive Date: 20100629
  Receipt Date: 20100430
  Transmission Date: 20101027
  Serious: No
  Sender: FDA-Public Use
  Company Number: US-WYE-H14952310

PATIENT
  Age: 28 Year
  Sex: Male
  Weight: 72.64 kg

DRUGS (3)
  1. PRISTIQ [Suspect]
     Dosage: 50 MG 1X PER 1 DAY, ORAL
     Route: 048
     Dates: start: 20090101
  2. PRILOSEC (OMEPRAZOLE) [Concomitant]
  3. PREVACID [Concomitant]

REACTIONS (2)
  - DIZZINESS [None]
  - MEDICATION RESIDUE [None]
